FAERS Safety Report 6840816-5 (Version None)
Quarter: 2010Q3

REPORT INFORMATION
  Report Type: 
  Country: None (occurrence: None)
  Receive Date: 20100709
  Receipt Date: 20100701
  Transmission Date: 20110219
  Serious: Yes (Hospitalization)
  Sender: FDA-Public Use
  Company Number: TRP_07088_2010

PATIENT
  Sex: Female

DRUGS (3)
  1. INFERGEN [Suspect]
     Indication: HEPATITIS C
     Dates: start: 20090101, end: 20090501
  2. RIBAVIRIN [Suspect]
     Indication: HEPATITIS C
     Dosage: ORAL
     Route: 048
     Dates: start: 20080301, end: 20080701
  3. RIBAVIRIN [Suspect]
     Indication: HEPATITIS C
     Dosage: ORAL
     Route: 048
     Dates: start: 20090101, end: 20090501

REACTIONS (5)
  - ANAEMIA [None]
  - CHOLELITHIASIS [None]
  - HYPERTHYROIDISM [None]
  - OSTEOPOROSIS [None]
  - PRURITUS [None]
